FAERS Safety Report 19951810 (Version 4)
Quarter: 2021Q4

REPORT INFORMATION
  Report Type: Report from Study
  Country: US (occurrence: US)
  Receive Date: 20211013
  Receipt Date: 20211110
  Transmission Date: 20220303
  Serious: Yes (Other)
  Sender: FDA-Public Use
  Company Number: US-NOVARTISPH-NVSC2021US234366

PATIENT
  Age: 40 Year
  Sex: Female

DRUGS (2)
  1. GILENYA [Suspect]
     Active Substance: FINGOLIMOD HYDROCHLORIDE
     Indication: Relapsing-remitting multiple sclerosis
     Dosage: 0.5 MG, QD
     Route: 048
     Dates: start: 20211011
  2. ALPRAZOLAM [Suspect]
     Active Substance: ALPRAZOLAM
     Indication: Product used for unknown indication
     Route: 065

REACTIONS (8)
  - Bradycardia [Unknown]
  - Somnolence [Recovered/Resolved]
  - Ear pain [Unknown]
  - Otorrhoea [Unknown]
  - Musculoskeletal stiffness [Unknown]
  - Toothache [Unknown]
  - Pain in jaw [Unknown]
  - Neck pain [Unknown]

NARRATIVE: CASE EVENT DATE: 20211011
